FAERS Safety Report 12099657 (Version 1)
Quarter: 2016Q1

REPORT INFORMATION
  Report Type: Spontaneous
  Country: AT (occurrence: AT)
  Receive Date: 20160222
  Receipt Date: 20160222
  Transmission Date: 20160526
  Serious: Yes (Hospitalization)
  Sender: FDA-Public Use
  Company Number: AT-TEVA-637033ISR

PATIENT
  Age: 29 Year
  Sex: Male

DRUGS (3)
  1. ALCOHOL. [Suspect]
     Active Substance: ALCOHOL
     Dates: start: 201307
  2. PREGABALIN. [Suspect]
     Active Substance: PREGABALIN
     Dates: start: 201307
  3. QUETIAPINE [Suspect]
     Active Substance: QUETIAPINE
     Dates: start: 201307

REACTIONS (5)
  - Polydipsia [Unknown]
  - Drug withdrawal syndrome [Unknown]
  - Overdose [Unknown]
  - Dependence [Unknown]
  - Toxicity to various agents [Unknown]

NARRATIVE: CASE EVENT DATE: 201307
